FAERS Safety Report 7815677-8 (Version None)
Quarter: 2011Q4

REPORT INFORMATION
  Report Type: 
  Country: None (occurrence: None)
  Receive Date: 20111014
  Receipt Date: 20111004
  Transmission Date: 20120403
  Serious: Yes (Death, Hospitalization, Other)
  Sender: FDA-Public Use
  Company Number: US-BAYER-200940641NA

PATIENT
  Age: 71 Year
  Sex: Male
  Weight: 109 kg

DRUGS (30)
  1. ZANTAC [Concomitant]
     Indication: PRODUCT USED FOR UNKNOWN INDICATION
     Dosage: 150 MG, BID
     Route: 048
     Dates: start: 20030715
  2. HEPARIN [Concomitant]
     Indication: PRODUCT USED FOR UNKNOWN INDICATION
     Dosage: 50000 U, UNK
     Route: 042
     Dates: start: 20030721, end: 20030721
  3. HEPARIN [Concomitant]
     Dosage: PRIME
     Route: 042
     Dates: start: 20030721, end: 20030721
  4. PHENYLEPHRINE HCL [Concomitant]
     Indication: PRODUCT USED FOR UNKNOWN INDICATION
     Dosage: 10 MG, UNK
     Route: 042
     Dates: start: 20030721
  5. FRESH FROZEN PLASMA [Concomitant]
     Dosage: 940 ML, UNK
     Route: 042
     Dates: start: 20030721
  6. TRASYLOL [Suspect]
     Dosage: 50 ML/HOUR INFUSION
     Route: 042
     Dates: start: 20030721, end: 20030721
  7. ACETYLSALICYLIC ACID SRT [Concomitant]
     Indication: PRODUCT USED FOR UNKNOWN INDICATION
     Dosage: 81 MG, QD
     Route: 048
     Dates: start: 19950101
  8. ALBUTEROL [Concomitant]
     Indication: PRODUCT USED FOR UNKNOWN INDICATION
     Dosage: 2 PUFFS AS NEEDED
     Dates: start: 20030715
  9. NITROGLYCERIN [Concomitant]
     Indication: PRODUCT USED FOR UNKNOWN INDICATION
     Dosage: TITRATED
     Route: 042
     Dates: start: 20030721
  10. FENTANYL [Concomitant]
     Dosage: UNK
     Route: 042
     Dates: start: 20030721, end: 20030721
  11. CLARITIN [Concomitant]
     Indication: PRODUCT USED FOR UNKNOWN INDICATION
     Dosage: 10 MG, QD
     Route: 048
     Dates: start: 20030715
  12. RED BLOOD CELLS [Concomitant]
  13. FENTANYL [Concomitant]
     Dosage: 350
     Route: 042
     Dates: start: 20030721, end: 20030721
  14. FIBER [Concomitant]
     Dosage: EVERY HOUR OF SLEEP LONG TERM USE
     Route: 048
  15. LIPITOR [Concomitant]
     Indication: PRODUCT USED FOR UNKNOWN INDICATION
     Dosage: 10 MG, QD
     Route: 048
     Dates: start: 19950101
  16. FRESH FROZEN PLASMA [Concomitant]
  17. FUROSEMIDE [Concomitant]
     Dosage: 100MG
     Route: 042
     Dates: start: 20030721
  18. ALBUMIN (HUMAN) [Concomitant]
     Dosage: 25% 50ML
     Route: 042
     Dates: start: 20030721
  19. MIDAZOLAM HCL [Concomitant]
     Indication: PRODUCT USED FOR UNKNOWN INDICATION
     Dosage: UNK
     Route: 042
     Dates: start: 20030721
  20. POTASSIUM CHLORIDE [Concomitant]
     Dosage: 80 MEQ, UNK
     Route: 042
     Dates: start: 20030721, end: 20030721
  21. TRASYLOL [Suspect]
     Indication: AORTIC VALVE REPLACEMENT
     Dosage: 200 ML CARDIOPULMONARY BYPASS PRIME
     Route: 042
     Dates: start: 20030721, end: 20030721
  22. TRASYLOL [Suspect]
     Indication: INTRA-AORTIC BALLOON PLACEMENT
     Dosage: 200 ML LOADING DOSE
     Route: 042
     Dates: start: 20030721, end: 20030721
  23. ALEVE (CAPLET) [Concomitant]
     Dosage: DAILY LONG TERM USE
     Route: 048
  24. CALCIUM CHLORIDE [Concomitant]
     Dosage: UNK
     Route: 042
     Dates: start: 20030721, end: 20030721
  25. PROTAMINE [Concomitant]
     Indication: PRODUCT USED FOR UNKNOWN INDICATION
     Dosage: 250 MG, UNK
     Route: 042
     Dates: start: 20030721, end: 20030721
  26. PROTAMINE [Concomitant]
  27. PLATELETS [Concomitant]
  28. TRASYLOL [Suspect]
     Indication: CORONARY ARTERY BYPASS
     Dosage: 1 ML INITIAL (TEST) DOSE
     Route: 042
     Dates: start: 20030721, end: 20030721
  29. EPINEPHRINE [Concomitant]
     Indication: PRODUCT USED FOR UNKNOWN INDICATION
     Dosage: TITRATED
     Route: 042
     Dates: start: 20030721
  30. DOPAMINE HCL [Concomitant]
     Indication: PRODUCT USED FOR UNKNOWN INDICATION
     Dosage: TITRATED
     Route: 042
     Dates: start: 20030721

REACTIONS (13)
  - FEAR [None]
  - UNEVALUABLE EVENT [None]
  - RENAL FAILURE [None]
  - INJURY [None]
  - DEATH [None]
  - ANXIETY [None]
  - ANHEDONIA [None]
  - MULTI-ORGAN FAILURE [None]
  - RENAL IMPAIRMENT [None]
  - RENAL INJURY [None]
  - EMOTIONAL DISTRESS [None]
  - STRESS [None]
  - PAIN [None]
